FAERS Safety Report 9516487 (Version 1)
Quarter: 2013Q1

REPORT INFORMATION
  Report Type: Spontaneous
  Country: US (occurrence: None)
  Receive Date: 20130305
  Receipt Date: 20130305
  Transmission Date: 20140127
  Serious: Yes (Other)
  Sender: FDA-Public Use
  Company Number: 163-21880-12113803

PATIENT
  Age: 58 Year
  Sex: Male

DRUGS (9)
  1. REVLIMID (LENALIDOMIDE) (15 MILLIGRAM, CAPSULES) [Suspect]
     Indication: PLASMA CELL MYELOMA
     Dosage: 15 MG, 14 IN 21 D, PO
     Route: 048
     Dates: start: 20121019
  2. WARFARIN (WARFARIN) [Concomitant]
  3. NEXIUM [Concomitant]
  4. GINKO BILOBA (GINKGO BILOBA) [Concomitant]
  5. VITAMIN B12 (CYANOCOBALAMIN) [Concomitant]
  6. MILK THISTLE (SILYBUM MARIANUM) [Concomitant]
  7. ECHINACEA (ECHINACEA EXTRACT) [Concomitant]
  8. VELCADE (BORTEZOMIB) [Concomitant]
  9. STEROIDS (CORTICOSTEROID NOS) (CREAM) [Concomitant]

REACTIONS (1)
  - Chest pain [None]
